FAERS Safety Report 12238717 (Version 1)
Quarter: 2016Q2

REPORT INFORMATION
  Report Type: Spontaneous
  Country: US (occurrence: None)
  Receive Date: 20160404
  Receipt Date: 20160404
  Transmission Date: 20160815
  Serious: Yes (Hospitalization)
  Sender: FDA-Public Use
  Company Number: None

PATIENT
  Age: 89 Year
  Sex: Male
  Weight: 79 kg

DRUGS (14)
  1. AVODART [Concomitant]
     Active Substance: DUTASTERIDE
  2. CRANBERRY EXTRACT [Concomitant]
     Active Substance: CRANBERRY JUICE
  3. ASPIRIN. [Suspect]
     Active Substance: ASPIRIN
     Indication: CORONARY ARTERY DISEASE
     Route: 048
  4. APIXABAN [Suspect]
     Active Substance: APIXABAN
     Indication: ATRIAL FIBRILLATION
     Route: 048
  5. SINEMET [Concomitant]
     Active Substance: CARBIDOPA\LEVODOPA
  6. LISINOPRIL. [Concomitant]
     Active Substance: LISINOPRIL
  7. CHOLECALCIFEROL [Concomitant]
     Active Substance: CHOLECALCIFEROL
  8. RANITIDINE. [Concomitant]
     Active Substance: RANITIDINE
  9. SPIRONOLACTONE. [Concomitant]
     Active Substance: SPIRONOLACTONE
  10. LEVOTHYROXINE. [Concomitant]
     Active Substance: LEVOTHYROXINE
  11. FUROSEMIDE. [Concomitant]
     Active Substance: FUROSEMIDE
  12. MULTIVITAMIN [Concomitant]
     Active Substance: VITAMINS
  13. ACETAMINOPHEN. [Concomitant]
     Active Substance: ACETAMINOPHEN
  14. ASCORBIC ACID. [Concomitant]
     Active Substance: ASCORBIC ACID

REACTIONS (8)
  - Occult blood positive [None]
  - Decreased appetite [None]
  - Asthenia [None]
  - Abasia [None]
  - Haemoglobin decreased [None]
  - Faeces discoloured [None]
  - Atrial flutter [None]
  - Renal impairment [None]

NARRATIVE: CASE EVENT DATE: 20160329
